FAERS Safety Report 9538500 (Version 1)
Quarter: 2013Q3

REPORT INFORMATION
  Report Type: Spontaneous
  Country: US (occurrence: None)
  Receive Date: 20130918
  Receipt Date: 20130918
  Transmission Date: 20140515
  Serious: Yes (Life-Threatening, Other)
  Sender: FDA-Public Use
  Company Number: None

PATIENT
  Age: 63 Year
  Sex: Female
  Weight: 68.04 kg

DRUGS (6)
  1. PREDNISONE [Suspect]
     Indication: RHINITIS ALLERGIC
     Dosage: TABLET DAILY FOR 7 DAYS (1/2 TABLET DAILY FOR 3 DAYS)
     Route: 048
     Dates: start: 20130517, end: 20130526
  2. PROMETHAZINE DM [Suspect]
     Indication: NASOPHARYNGITIS
     Route: 048
  3. AMOXICILLIN [Suspect]
     Indication: BACTERIAL INFECTION
     Route: 048
  4. PREMARIN VAG CREAM [Suspect]
  5. IBUPROFEN [Suspect]
     Dosage: 3 PILLS DAILY
  6. TUSSIN DM COUGH SYRUP [Suspect]
     Dosage: 2 TEASPOON, EVERY 8 HOURS
     Route: 048

REACTIONS (7)
  - Sensation of pressure [None]
  - Pain [None]
  - Muscle tightness [None]
  - Movement disorder [None]
  - Muscle tightness [None]
  - Musculoskeletal stiffness [None]
  - Drug effect decreased [None]
